FAERS Safety Report 5292568-0 (Version None)
Quarter: 2007Q2

REPORT INFORMATION
  Report Type: 
  Country: None (occurrence: None)
  Receive Date: 20070404
  Receipt Date: 20070323
  Transmission Date: 20071010
  Serious: Yes (Death)
  Sender: FDA-Public Use
  Company Number: T200700344

PATIENT
  Age: 89 Year
  Sex: Female

DRUGS (1)
  1. OPTIRAY(IOVERSOL) SOLUTION FOR INJECTION, 320 [Suspect]
     Indication: UROGRAM
     Dosage: 20 ML, SINGLE, INTRAVENOUS
     Route: 042
     Dates: start: 20070301, end: 20070301

REACTIONS (5)
  - CARDIAC ARREST [None]
  - COUGH [None]
  - DYSPNOEA [None]
  - PROCEDURAL COMPLICATION [None]
  - SHOCK [None]
